FAERS Safety Report 20907979 (Version 2)
Quarter: 2022Q2

REPORT INFORMATION
  Report Type: Report from Study
  Country: US (occurrence: US)
  Receive Date: 20220602
  Receipt Date: 20220608
  Transmission Date: 20220721
  Serious: Yes (Death, Life-Threatening, Hospitalization, Other)
  Sender: FDA-Public Use
  Company Number: US-GILEAD-2022-0583693

PATIENT
  Age: 48 Year
  Sex: Male
  Weight: 83.2 kg

DRUGS (8)
  1. REMDESIVIR [Suspect]
     Active Substance: REMDESIVIR
     Indication: COVID-19
     Dosage: 100 MG
     Route: 042
     Dates: start: 20210125, end: 20210126
  2. DORNASE ALFA [Suspect]
     Active Substance: DORNASE ALFA
     Indication: COVID-19
     Dosage: 5 MG, BID
     Route: 055
     Dates: start: 20210125, end: 20210201
  3. DORNASE ALFA [Suspect]
     Active Substance: DORNASE ALFA
     Dosage: 5 MG, BID
     Route: 055
     Dates: start: 20210204, end: 20210204
  4. DORNASE ALFA [Suspect]
     Active Substance: DORNASE ALFA
     Dosage: 5 MG, QD
     Route: 055
     Dates: start: 20210205, end: 20210205
  5. CEFEPIME [Concomitant]
     Active Substance: CEFEPIME HYDROCHLORIDE
     Indication: Respiratory tract infection
     Dosage: 1 G Q12
     Dates: start: 20210203
  6. HEPARIN [Concomitant]
     Active Substance: HEPARIN SODIUM
     Indication: Thrombosis prophylaxis
     Dosage: 5000 U Q8H
     Route: 058
     Dates: start: 20210122, end: 20210203
  7. HEPARIN [Concomitant]
     Active Substance: HEPARIN SODIUM
     Dosage: 5000 UNITS Q8 H
     Route: 058
     Dates: start: 20210203
  8. CISATRACURIUM [Concomitant]
     Active Substance: CISATRACURIUM
     Indication: Sedative therapy
     Dosage: 10 MG/H, CONTINUOUS DRIP @ 5 ML/H
     Route: 041
     Dates: start: 20210202

REACTIONS (1)
  - Respiratory failure [Fatal]

NARRATIVE: CASE EVENT DATE: 20210203
